FAERS Safety Report 6064765-8 (Version None)
Quarter: 2009Q1

REPORT INFORMATION
  Report Type: 
  Country: None (occurrence: None)
  Receive Date: 20090204
  Receipt Date: 20081212
  Transmission Date: 20090719
  Serious: No
  Sender: FDA-Public Use
  Company Number: A0755016A

PATIENT
  Age: 66 Year
  Sex: Female

DRUGS (5)
  1. ARIXTRA [Suspect]
     Indication: DEEP VEIN THROMBOSIS
     Dosage: 10MG PER DAY
     Route: 058
     Dates: start: 20080201
  2. HYDROCORTISONE [Concomitant]
  3. ATENOLOL [Concomitant]
  4. SPIRONOLACTONE/HYDROCHLOROTHIAZIDE [Concomitant]
  5. CHEMOTHERAPY [Concomitant]

REACTIONS (4)
  - INJECTION SITE HAEMATOMA [None]
  - INJECTION SITE NODULE [None]
  - INJECTION SITE PAIN [None]
  - PRODUCT QUALITY ISSUE [None]
